FAERS Safety Report 11457838 (Version 1)
Quarter: 2015Q3

REPORT INFORMATION
  Report Type: Spontaneous
  Country: US (occurrence: None)
  Receive Date: 20150903
  Receipt Date: 20150903
  Transmission Date: 20151125
  Serious: Yes (Disabling)
  Sender: FDA-Public Use
  Company Number: None

PATIENT
  Age: 59 Year
  Sex: Male
  Weight: 79.38 kg

DRUGS (3)
  1. PRILOSEC [Suspect]
     Active Substance: OMEPRAZOLE MAGNESIUM
     Indication: GASTROOESOPHAGEAL REFLUX DISEASE
     Dosage: 20MG 1X, 20MG 2X?TWICE DAILY?TAKEN BY MOUTH
     Route: 048
     Dates: start: 20150709, end: 20150801
  2. CENTRUM FOR MEN 50+ [Concomitant]
  3. VITAMIN D3 [Concomitant]
     Active Substance: CHOLECALCIFEROL

REACTIONS (7)
  - Pain in extremity [None]
  - Back pain [None]
  - Peripheral swelling [None]
  - Finger deformity [None]
  - Dizziness [None]
  - Arthralgia [None]
  - Muscular weakness [None]

NARRATIVE: CASE EVENT DATE: 20150801
